FAERS Safety Report 5206253-4 (Version None)
Quarter: 2007Q1

REPORT INFORMATION
  Report Type: 
  Country: None (occurrence: None)
  Receive Date: 20070111
  Receipt Date: 20070102
  Transmission Date: 20070707
  Serious: Yes (Hospitalization)
  Sender: FDA-Public Use
  Company Number: US-SHR-US-2006-038875

PATIENT
  Age: 87 Year
  Sex: Female
  Weight: 41 kg

DRUGS (1)
  1. ULTRAVIST 300 [Suspect]
     Dosage: 150 ML, 1 DOSE
     Route: 042
     Dates: start: 20061129, end: 20061129

REACTIONS (7)
  - ANAPHYLACTIC SHOCK [None]
  - DEPRESSED LEVEL OF CONSCIOUSNESS [None]
  - ERYTHEMA [None]
  - HYPERSENSITIVITY [None]
  - HYPOTENSION [None]
  - HYPOXIA [None]
  - URTICARIA [None]
